FAERS Safety Report 5594554-X (Version None)
Quarter: 2008Q1

REPORT INFORMATION
  Report Type: 
  Country: None (occurrence: None)
  Receive Date: 20080117
  Receipt Date: 20080107
  Transmission Date: 20080703
  Serious: Yes (Death)
  Sender: FDA-Public Use
  Company Number: US-WYE-H02046608

PATIENT
  Age: 40 Year
  Sex: Female

DRUGS (3)
  1. PROPRANOLOL HYDROCHLORIDE [Suspect]
     Dosage: UNSPECIFIED
     Dates: start: 20060101
  2. DIPHENHYDRAMINE/PARACETAMOL [Suspect]
     Dosage: UNSPECIFIED
  3. ACETAMINOPHEN W/ PROPOXYPHENE HCL [Suspect]
     Dosage: UNSPECIFIED

REACTIONS (1)
  - INTENTIONAL OVERDOSE [None]
